FAERS Safety Report 12231576 (Version 1)
Quarter: 2016Q2

REPORT INFORMATION
  Report Type: Spontaneous
  Country: US (occurrence: US)
  Receive Date: 20160401
  Receipt Date: 20160401
  Transmission Date: 20160815
  Serious: Yes (Life-Threatening, Hospitalization, Other)
  Sender: FDA-Public Use
  Company Number: US-MDT-ADR-2016-00209

PATIENT
  Age: 64 Year
  Sex: Male

DRUGS (1)
  1. LIORESAL [Suspect]
     Active Substance: BACLOFEN
     Indication: MUSCLE SPASTICITY
     Dosage: 830.4 MCG/DAY
     Route: 037
     Dates: start: 20151125, end: 20160111

REACTIONS (4)
  - Renal failure [Unknown]
  - Infection [Unknown]
  - Sepsis [Unknown]
  - Pyrexia [Unknown]
